FAERS Safety Report 14356755 (Version 1)
Quarter: 2018Q1

REPORT INFORMATION
  Report Type: Spontaneous
  Country: US (occurrence: US)
  Receive Date: 20180104
  Receipt Date: 20180104
  Transmission Date: 20180509
  Serious: Yes (Other)
  Sender: FDA-Public Use
  Company Number: None

PATIENT
  Age: 63 Year
  Sex: Female

DRUGS (1)
  1. AMPYRA [Suspect]
     Active Substance: DALFAMPRIDINE
     Indication: MULTIPLE SCLEROSIS
     Route: 048
     Dates: start: 201112

REACTIONS (5)
  - Fall [None]
  - Burning sensation [None]
  - Multiple sclerosis [None]
  - Head injury [None]
  - Urinary tract infection [None]

NARRATIVE: CASE EVENT DATE: 20171125
